FAERS Safety Report 11069137 (Version 1)
Quarter: 2015Q2

REPORT INFORMATION
  Report Type: Spontaneous
  Country: FR (occurrence: FR)
  Receive Date: 20150427
  Receipt Date: 20150427
  Transmission Date: 20150821
  Serious: Yes (Other)
  Sender: FDA-Public Use
  Company Number: FR-ENDO PHARMACEUTICALS INC.-2015-000612

PATIENT
  Age: 18 Year
  Sex: Female

DRUGS (3)
  1. FROVA [Suspect]
     Active Substance: FROVATRIPTAN SUCCINATE
     Indication: HEADACHE
     Route: 048
     Dates: start: 20150310, end: 20150310
  2. IBUPROFEN TABLETS [Suspect]
     Active Substance: IBUPROFEN
     Indication: HEADACHE
     Route: 048
     Dates: start: 20150310, end: 20150310
  3. CONTRACEPTIVE PILL [Concomitant]
     Indication: CONTRACEPTION
     Route: 065

REACTIONS (2)
  - Swollen tongue [Recovered/Resolved]
  - Throat tightness [Recovered/Resolved]

NARRATIVE: CASE EVENT DATE: 20150310
